FAERS Safety Report 4893913-8 (Version None)
Quarter: 2006Q1

REPORT INFORMATION
  Report Type: 
  Country: None (occurrence: None)
  Receive Date: 20060127
  Receipt Date: 20050203
  Transmission Date: 20060701
  Serious: No
  Sender: FDA-Public Use
  Company Number: US-GLAXOSMITHKLINE-A0543738A

PATIENT
  Age: 51 Year
  Sex: Female

DRUGS (5)
  1. WELLBUTRIN [Suspect]
     Indication: DEPRESSION
     Dosage: 75MG PER DAY
     Route: 048
     Dates: start: 20050201
  2. PROZAC [Concomitant]
  3. TOPROL [Concomitant]
  4. SYNTHROID [Concomitant]
  5. LIPITOR [Concomitant]

REACTIONS (1)
  - RASH [None]
